FAERS Safety Report 21352348 (Version 2)
Quarter: 2022Q3

REPORT INFORMATION
  Report Type: Report from Study
  Country: US (occurrence: US)
  Receive Date: 20220920
  Receipt Date: 20220922
  Transmission Date: 20221027
  Serious: No
  Sender: FDA-Public Use
  Company Number: US-NOVARTISTESTPH-NVSC2022US211337

PATIENT
  Age: 54 Year
  Sex: Female

DRUGS (1)
  1. KESIMPTA [Suspect]
     Active Substance: OFATUMUMAB
     Indication: Multiple sclerosis
     Dosage: 20 MG, QMO
     Route: 058
     Dates: start: 202107

REACTIONS (5)
  - COVID-19 [Recovering/Resolving]
  - Memory impairment [Recovering/Resolving]
  - Temperature intolerance [Recovering/Resolving]
  - Fatigue [Recovering/Resolving]
  - Taste disorder [Recovering/Resolving]

NARRATIVE: CASE EVENT DATE: 20220601
